FAERS Safety Report 8358794-9 (Version None)
Quarter: 2012Q2

REPORT INFORMATION
  Report Type: 
  Country: None (occurrence: None)
  Receive Date: 20120514
  Receipt Date: 20090116
  Transmission Date: 20120825
  Serious: No
  Sender: FDA-Public Use
  Company Number: PHFR2009GB002962

PATIENT
  Sex: Male

DRUGS (2)
  1. STEROIDS NOS [Concomitant]
  2. TASIGNA [Suspect]

REACTIONS (3)
  - RASH [None]
  - ADVERSE DRUG REACTION [None]
  - TREMOR [None]
